FAERS Safety Report 9701319 (Version 2)
Quarter: 2013Q4

REPORT INFORMATION
  Report Type: Spontaneous
  Country: US (occurrence: US)
  Receive Date: 20131121
  Receipt Date: 20131121
  Transmission Date: 20140711
  Serious: Yes (Hospitalization)
  Sender: FDA-Public Use
  Company Number: US-GILEAD-2008-0016288

PATIENT
  Sex: Male
  Weight: 86.18 kg

DRUGS (18)
  1. LETAIRIS [Suspect]
     Indication: PULMONARY HYPERTENSION
     Route: 048
     Dates: start: 200801, end: 20080416
  2. ACETYLCYSTEINE [Concomitant]
     Route: 055
  3. ALBUTEROL [Concomitant]
     Route: 055
  4. LASIX [Concomitant]
     Route: 048
  5. AZATHIOPRINE [Concomitant]
     Route: 048
  6. POTASSIUM CHLORIDE [Concomitant]
     Route: 048
  7. AMARYL [Concomitant]
     Route: 048
  8. AMARYL [Concomitant]
     Route: 048
  9. AVODART [Concomitant]
     Route: 048
  10. CARDIZEM CD [Concomitant]
     Route: 048
  11. COUMADIN [Concomitant]
     Route: 048
  12. OXYGEN [Concomitant]
  13. DIOVAN [Concomitant]
     Route: 048
  14. LIPITOR [Concomitant]
     Route: 048
  15. PREDNISONE [Concomitant]
     Route: 048
  16. BACTRIM DS [Concomitant]
     Dosage: MWF
     Route: 048
  17. FLAXSEED OIL [Concomitant]
  18. ASA [Concomitant]
     Route: 048

REACTIONS (1)
  - Fluid overload [Not Recovered/Not Resolved]
